FAERS Safety Report 4972756-0 (Version None)
Quarter: 2006Q2

REPORT INFORMATION
  Report Type: 
  Country: None (occurrence: None)
  Receive Date: 20060414
  Receipt Date: 20060403
  Transmission Date: 20061013
  Serious: Yes (Death, Other)
  Sender: FDA-Public Use
  Company Number: GB-JNJFOC-20060301834

PATIENT
  Sex: Female
  Weight: 88 kg

DRUGS (15)
  1. REMICADE [Suspect]
     Dosage: 3-3.5MG/KG PER DAY
     Route: 042
  2. REMICADE [Suspect]
     Dosage: 3-3.5MG/KG PER DAY
     Route: 042
  3. REMICADE [Suspect]
     Indication: PUSTULAR PSORIASIS
     Dosage: 3-3.5MG/KG INTERMITTENTLY
     Route: 042
  4. ACITRETIN [Concomitant]
     Route: 065
  5. DAPSONE [Concomitant]
     Route: 065
  6. HYDROXYUREA [Concomitant]
     Route: 065
  7. ASPIRIN [Concomitant]
     Route: 065
  8. FUROSEMIDE [Concomitant]
     Route: 065
  9. LANSOPRAZOLE [Concomitant]
     Route: 065
  10. BENZAFIBRATE [Concomitant]
     Route: 065
  11. SALBUTAMOL [Concomitant]
     Route: 065
  12. BETAMETHASONE [Concomitant]
     Route: 065
  13. DILTIAZEM [Concomitant]
     Route: 065
  14. DOXAZOSIN [Concomitant]
     Route: 065
  15. BALSALAZINE [Concomitant]
     Route: 065

REACTIONS (8)
  - ANOREXIA [None]
  - CARDIAC FAILURE CONGESTIVE [None]
  - GENERAL PHYSICAL HEALTH DETERIORATION [None]
  - JAUNDICE [None]
  - MYCOSIS FUNGOIDES [None]
  - NON-HODGKIN'S LYMPHOMA [None]
  - T-CELL LYMPHOMA [None]
  - WEIGHT DECREASED [None]
